FAERS Safety Report 6639311-8 (Version None)
Quarter: 2010Q1

REPORT INFORMATION
  Report Type: 
  Country: None (occurrence: None)
  Receive Date: 20100315
  Receipt Date: 20100302
  Transmission Date: 20100710
  Serious: Yes (Life-Threatening, Other)
  Sender: FDA-Public Use
  Company Number: 2010AC000155

PATIENT
  Sex: Male

DRUGS (1)
  1. DIGOXIN [Suspect]
     Dosage: 125 MCG;QD;PO
     Route: 048
     Dates: start: 20080101

REACTIONS (4)
  - ANXIETY [None]
  - ECONOMIC PROBLEM [None]
  - INJURY [None]
  - MYOCARDIAL INFARCTION [None]
